FAERS Safety Report 7658595-0 (Version None)
Quarter: 2011Q3

REPORT INFORMATION
  Report Type: 
  Country: None (occurrence: None)
  Receive Date: 20110805
  Receipt Date: 20110804
  Transmission Date: 20111222
  Serious: Yes (Death, Hospitalization, Other)
  Sender: FDA-Public Use
  Company Number: DE-BRISTOL-MYERS SQUIBB COMPANY-14385462

PATIENT
  Age: 44 Year
  Sex: Female

DRUGS (5)
  1. DASATINIB [Suspect]
     Indication: LEUKAEMIA
     Dosage: 14APR05-11APR06(140MG);22MAY06-04MAR07(80MG);05MAR07 (100MG) CONTI
     Route: 048
     Dates: start: 20070305
  2. ABILIFY [Concomitant]
     Dates: end: 20081101
  3. SOLVEX [Concomitant]
     Dates: end: 20081101
  4. OMEPRAZOLE [Concomitant]
     Dates: end: 20081101
  5. SPASMEX [Concomitant]
     Dates: end: 20081101

REACTIONS (4)
  - PLEURAL EFFUSION [None]
  - SEPSIS [None]
  - PNEUMONIA [None]
  - CARDIAC ARREST [None]
